FAERS Safety Report 13800703 (Version 3)
Quarter: 2018Q1

REPORT INFORMATION
  Report Type: Spontaneous
  Country: US (occurrence: US)
  Receive Date: 20170727
  Receipt Date: 20180105
  Transmission Date: 20180508
  Serious: Yes (Hospitalization, Other)
  Sender: FDA-Public Use
  Company Number: US-PFIZER INC-2017320326

PATIENT
  Age: 75 Year
  Sex: Female

DRUGS (5)
  1. GABAPENTIN. [Suspect]
     Active Substance: GABAPENTIN
     Dosage: 900 MG, 1X/DAY (AT NIGHT)
  2. METOPROLOL TARTRATE. [Concomitant]
     Active Substance: METOPROLOL TARTRATE
     Dosage: 25 MG, 2X/DAY
     Dates: start: 201606
  3. PRILOSEC [Concomitant]
     Active Substance: OMEPRAZOLE MAGNESIUM
     Dosage: 1 DF, UNK
  4. GABAPENTIN. [Suspect]
     Active Substance: GABAPENTIN
     Indication: EXOSTOSIS
     Dosage: 1500 MG, DAILY (300 MG, THREE TABLETS AT NIGHT AND TWO IN THE MORNING)
  5. METOPROLOL TARTRATE. [Concomitant]
     Active Substance: METOPROLOL TARTRATE
     Indication: CARDIAC DISORDER
     Dosage: 20 MG, UNK

REACTIONS (6)
  - Rib fracture [Unknown]
  - Asthenia [Unknown]
  - Product use in unapproved indication [Unknown]
  - Road traffic accident [Not Recovered/Not Resolved]
  - Ankle fracture [Unknown]
  - Fatigue [Unknown]
